FAERS Safety Report 16886711 (Version 1)
Quarter: 2019Q4

REPORT INFORMATION
  Report Type: Spontaneous
  Country: US (occurrence: US)
  Receive Date: 20191004
  Receipt Date: 20191004
  Transmission Date: 20200122
  Serious: No
  Sender: FDA-Public Use
  Company Number: US-ALEXION PHARMACEUTICALS INC.-A201915119

PATIENT
  Age: 26 Year
  Sex: Female

DRUGS (5)
  1. METHYLPREDNISOLONE                 /00049605/ [Concomitant]
     Indication: EVIDENCE BASED TREATMENT
     Route: 065
  2. CLINDAMYCIN. [Concomitant]
     Active Substance: CLINDAMYCIN
     Indication: BABESIOSIS
     Route: 065
  3. SOLIRIS [Suspect]
     Active Substance: ECULIZUMAB
     Indication: ATYPICAL HAEMOLYTIC URAEMIC SYNDROME
     Dosage: UNK, FOR 3 WEEKS
     Route: 065
  4. DOXYCYCLINE. [Concomitant]
     Active Substance: DOXYCYCLINE
     Indication: HUMAN ANAPLASMOSIS
     Route: 065
  5. ATOVAQUONE. [Concomitant]
     Active Substance: ATOVAQUONE
     Indication: BABESIOSIS
     Route: 065

REACTIONS (1)
  - Nervous system disorder [Unknown]
